FAERS Safety Report 5618946-5 (Version None)
Quarter: 2008Q1

REPORT INFORMATION
  Report Type: 
  Country: None (occurrence: None)
  Receive Date: 20080207
  Receipt Date: 20080204
  Transmission Date: 20080703
  Serious: Yes (Life-Threatening, Hospitalization)
  Sender: FDA-Public Use
  Company Number: PHBS2006JP09097

PATIENT
  Age: 30 Week
  Sex: Female

DRUGS (2)
  1. LOXOPROFEN SODIUM [Suspect]
     Indication: WOUND COMPLICATION
     Route: 048
     Dates: start: 20050801
  2. VOLTAREN [Suspect]
     Indication: WOUND COMPLICATION
     Route: 048
     Dates: start: 20050801

REACTIONS (11)
  - BLOOD AMYLASE INCREASED [None]
  - BLOOD GLUCOSE INCREASED [None]
  - HAEMOGLOBIN DECREASED [None]
  - INTESTINAL OPERATION [None]
  - LARGE INTESTINAL ULCER [None]
  - LOSS OF CONSCIOUSNESS [None]
  - MELAENA [None]
  - NEUTROPHIL COUNT INCREASED [None]
  - PLATELET COUNT INCREASED [None]
  - SHOCK HAEMORRHAGIC [None]
  - WHITE BLOOD CELL COUNT INCREASED [None]
